FAERS Safety Report 5309921-9 (Version None)
Quarter: 2007Q2

REPORT INFORMATION
  Report Type: 
  Country: None (occurrence: None)
  Receive Date: 20070427
  Receipt Date: 20070413
  Transmission Date: 20071010
  Serious: Yes (Other)
  Sender: FDA-Public Use
  Company Number: JP-ROCHE-490874

PATIENT
  Age: 5 Year
  Sex: Female
  Weight: 18 kg

DRUGS (4)
  1. TAMIFLU [Suspect]
     Route: 048
     Dates: start: 20070319, end: 20070319
  2. PERIACTIN [Concomitant]
     Route: 048
     Dates: start: 20070319, end: 20070324
  3. ASVERIN [Concomitant]
     Route: 048
     Dates: start: 20070319, end: 20070324
  4. COCARL [Concomitant]
     Route: 048
     Dates: start: 20070319

REACTIONS (2)
  - ABNORMAL BEHAVIOUR [None]
  - DEPRESSED LEVEL OF CONSCIOUSNESS [None]
